FAERS Safety Report 5557646-7 (Version None)
Quarter: 2007Q4

REPORT INFORMATION
  Report Type: 
  Country: None (occurrence: None)
  Receive Date: 20071214
  Receipt Date: 20071206
  Transmission Date: 20080405
  Serious: Yes (Other)
  Sender: FDA-Public Use
  Company Number: B0499639A

PATIENT
  Age: 71 Year
  Sex: Male
  Weight: 71 kg

DRUGS (8)
  1. ARIXTRA [Suspect]
     Indication: DRUG USE FOR UNKNOWN INDICATION
     Dosage: 2.5MG PER DAY
     Route: 058
     Dates: start: 20070811, end: 20070901
  2. TAREG [Concomitant]
     Route: 048
  3. KERLONE [Concomitant]
  4. AMLOR [Concomitant]
  5. SEROPRAM [Concomitant]
  6. TIENAM [Concomitant]
  7. ZYVOX [Concomitant]
  8. TRIFLUCAN [Concomitant]

REACTIONS (3)
  - HAEMORRHAGE [None]
  - POST PROCEDURAL HAEMORRHAGE [None]
  - THROMBOSIS [None]
